FAERS Safety Report 17420707 (Version 1)
Quarter: 2020Q1

REPORT INFORMATION
  Report Type: Spontaneous
  Country: DE (occurrence: DE)
  Receive Date: 20200214
  Receipt Date: 20200214
  Transmission Date: 20200409
  Serious: Yes (Hospitalization)
  Sender: FDA-Public Use
  Company Number: NVSC2020DE036520

PATIENT
  Age: 54 Year
  Sex: Female

DRUGS (9)
  1. CARBOPLATIN. [Suspect]
     Active Substance: CARBOPLATIN
     Dosage: 579.08 MG
     Route: 065
     Dates: start: 20190716, end: 20190716
  2. CARBOPLATIN. [Suspect]
     Active Substance: CARBOPLATIN
     Dosage: 621.55 MG
     Route: 065
     Dates: start: 20190611, end: 20190611
  3. CARBOPLATIN. [Suspect]
     Active Substance: CARBOPLATIN
     Dosage: 527.80 MG
     Route: 065
     Dates: start: 20190924, end: 20190924
  4. CARBOPLATIN. [Suspect]
     Active Substance: CARBOPLATIN
     Indication: OVARIAN CANCER
     Dosage: 736.10 MG
     Route: 065
     Dates: start: 20190429, end: 20190429
  5. CARBOPLATIN. [Suspect]
     Active Substance: CARBOPLATIN
     Dosage: 736.10 MG
     Route: 065
     Dates: start: 20190520, end: 20190520
  6. PACLITAXEL. [Suspect]
     Active Substance: PACLITAXEL
     Dosage: 175 MG/M2, ONCE/SINGLE
     Route: 065
     Dates: start: 20190520, end: 20190520
  7. PACLITAXEL. [Suspect]
     Active Substance: PACLITAXEL
     Dosage: 175 MG/M2, ONCE/SINGLE
     Route: 065
     Dates: start: 20190611, end: 20190611
  8. CARBOPLATIN. [Suspect]
     Active Substance: CARBOPLATIN
     Dosage: 467.50 MG
     Route: 065
     Dates: start: 20190827, end: 20190827
  9. PACLITAXEL. [Suspect]
     Active Substance: PACLITAXEL
     Indication: OVARIAN CANCER
     Dosage: 175 MG/M2, ONCE/SINGLE
     Route: 065
     Dates: start: 20190429, end: 20190429

REACTIONS (1)
  - Fatigue [Recovered/Resolved]

NARRATIVE: CASE EVENT DATE: 20190501
